FAERS Safety Report 18879091 (Version 3)
Quarter: 2022Q3

REPORT INFORMATION
  Report Type: Spontaneous
  Country: US (occurrence: US)
  Receive Date: 20210211
  Receipt Date: 20220720
  Transmission Date: 20221027
  Serious: No
  Sender: FDA-Public Use
  Company Number: US-PFIZER INC-2020487152

PATIENT
  Age: 76 Year
  Sex: Female
  Weight: 48.53 kg

DRUGS (4)
  1. IBRANCE [Suspect]
     Active Substance: PALBOCICLIB
     Indication: Breast cancer stage IV
     Dosage: 75 MG, CYCLIC (DAILY FOR 3 WEEKS AND THEN 1 WEEK OFF.)
     Route: 048
  2. IBRANCE [Suspect]
     Active Substance: PALBOCICLIB
     Indication: Breast cancer female
  3. FASLODEX [Concomitant]
     Active Substance: FULVESTRANT
     Indication: Breast cancer stage IV
     Dosage: UNK, MONTHLY (250MG/5 2 SHOTS EVERY MONTH)
  4. XGEVA [Concomitant]
     Active Substance: DENOSUMAB
     Indication: Breast cancer stage IV
     Dosage: 120 MG, EVERY 3 MONTHS  (120 MG. 1 SHOT EVERY 3 MONTHS)

REACTIONS (2)
  - Tumour marker increased [Unknown]
  - Inappropriate schedule of product administration [Unknown]

NARRATIVE: CASE EVENT DATE: 20201201
